FAERS Safety Report 9921164 (Version 1)
Quarter: 2014Q1

REPORT INFORMATION
  Report Type: Spontaneous
  Country: US (occurrence: US)
  Receive Date: 20140225
  Receipt Date: 20140225
  Transmission Date: 20141002
  Serious: Yes (Other)
  Sender: FDA-Public Use
  Company Number: US-AMGEN-USASP2014012531

PATIENT
  Age: 49 Year
  Sex: Male
  Weight: 96.15 kg

DRUGS (7)
  1. VECTIBIX [Suspect]
     Indication: COLORECTAL CANCER METASTATIC
     Dosage: 6 MG/KG, UNK
     Route: 065
  2. ERBITUX [Suspect]
     Indication: PRODUCT USED FOR UNKNOWN INDICATION
     Dosage: 75 MG, UNK
     Route: 065
  3. XELODA [Concomitant]
     Indication: COLORECTAL CANCER METASTATIC
     Dosage: UNK
  4. AVASTIN                            /01555201/ [Concomitant]
     Indication: COLORECTAL CANCER METASTATIC
     Dosage: UNK
  5. FOLINIC ACID [Concomitant]
     Indication: COLORECTAL CANCER METASTATIC
     Dosage: UNK
  6. FLUOROURACIL [Concomitant]
     Indication: COLORECTAL CANCER METASTATIC
     Dosage: UNK
  7. OXALIPLATIN [Concomitant]
     Indication: COLORECTAL CANCER METASTATIC
     Dosage: UNK

REACTIONS (9)
  - Activities of daily living impaired [Unknown]
  - Rash [Recovering/Resolving]
  - Pain of skin [Unknown]
  - Nasal oedema [Unknown]
  - Erythema [Unknown]
  - Neuropathy peripheral [Unknown]
  - Urticaria [Unknown]
  - Pain in extremity [Unknown]
  - Chills [Unknown]
